FAERS Safety Report 4372036-0 (Version None)
Quarter: 2004Q2

REPORT INFORMATION
  Report Type: 
  Country: None (occurrence: None)
  Receive Date: 20040607
  Receipt Date: 20040421
  Transmission Date: 20050107
  Serious: No
  Sender: FDA-Public Use
  Company Number: PHBS2004JP05510

PATIENT
  Age: 68 Year
  Sex: Female
  Weight: 60 kg

DRUGS (5)
  1. DIOVAN [Suspect]
     Dosage: 80 MG/DAY
     Route: 048
     Dates: start: 20040407, end: 20040421
  2. BAYASPIRIN [Concomitant]
     Dosage: 100 MG, UNK
     Route: 048
     Dates: start: 20030521
  3. SERMION [Concomitant]
     Dosage: 10 MG, UNK
     Route: 048
     Dates: start: 20030430
  4. PANTOSIN [Concomitant]
     Dosage: 1.4 G, UNK
     Route: 048
     Dates: start: 20030716
  5. MAGNESIUM OXIDE [Concomitant]
     Dosage: 1.4 G, UNK
     Route: 048
     Dates: start: 20030716

REACTIONS (4)
  - DRUG ERUPTION [None]
  - ERYTHEMA [None]
  - PRURITUS [None]
  - SKIN HYPERPIGMENTATION [None]
